FAERS Safety Report 20207519 (Version 1)
Quarter: 2021Q4

REPORT INFORMATION
  Report Type: Other
  Country: US (occurrence: None)
  Receive Date: 20211220
  Receipt Date: 20211220
  Transmission Date: 20220303
  Serious: Yes (Death, Other)
  Sender: FDA-Public Use
  Company Number: US-ROCHE-2982211

PATIENT

DRUGS (7)
  1. RITUXIMAB [Suspect]
     Active Substance: RITUXIMAB
     Indication: Diffuse large B-cell lymphoma
     Route: 041
  2. DOXORUBICIN [Suspect]
     Active Substance: DOXORUBICIN
     Indication: Diffuse large B-cell lymphoma
     Route: 065
  3. VINCRISTINE [Suspect]
     Active Substance: VINCRISTINE
     Indication: Diffuse large B-cell lymphoma
     Route: 065
  4. CYCLOPHOSPHAMIDE [Suspect]
     Active Substance: CYCLOPHOSPHAMIDE
     Indication: Diffuse large B-cell lymphoma
     Route: 065
  5. PREDNISOLONE [Suspect]
     Active Substance: PREDNISOLONE
     Indication: Diffuse large B-cell lymphoma
     Route: 065
  6. DURVALUMAB [Suspect]
     Active Substance: DURVALUMAB
     Indication: Diffuse large B-cell lymphoma
     Dosage: ON DAY 1 OF EACH 21-DAY CYCLE PLUS 6-8 CYCLES OF R-CHOP
     Route: 042
  7. LENALIDOMIDE [Suspect]
     Active Substance: LENALIDOMIDE
     Indication: Diffuse large B-cell lymphoma
     Dosage: ON DAYS 1-14 FROM
     Route: 048

REACTIONS (13)
  - Lymphoma [Fatal]
  - Neutropenia [Unknown]
  - Leukopenia [Unknown]
  - Febrile neutropenia [Unknown]
  - Infection [Unknown]
  - Fatigue [Unknown]
  - Peripheral sensory neuropathy [Unknown]
  - Nausea [Unknown]
  - Cardiotoxicity [Unknown]
  - Infusion related reaction [Unknown]
  - Diarrhoea [Unknown]
  - Hepatitis [Unknown]
  - Rash [Unknown]
